FAERS Safety Report 7581409-4 (Version None)
Quarter: 2011Q2

REPORT INFORMATION
  Report Type: 
  Country: None (occurrence: None)
  Receive Date: 20110629
  Receipt Date: 20110617
  Transmission Date: 20111010
  Serious: Yes (Other)
  Sender: FDA-Public Use
  Company Number: PHHY2011US15734

PATIENT
  Sex: Female

DRUGS (3)
  1. VITAMIN B-12 [Concomitant]
     Dosage: UNK UKN, UNK
  2. GILENYA [Suspect]
     Indication: MULTIPLE SCLEROSIS
     Dosage: 0.5 MG, QD
     Route: 048
     Dates: start: 20110215
  3. VITAMIN D [Concomitant]
     Dosage: UNK UKN, UNK

REACTIONS (5)
  - VISION BLURRED [None]
  - BLOOD GLUCOSE DECREASED [None]
  - VISUAL IMPAIRMENT [None]
  - SCLERAL DISCOLOURATION [None]
  - VISUAL FIELD DEFECT [None]
